FAERS Safety Report 5870934-X (Version None)
Quarter: 2008Q3

REPORT INFORMATION
  Report Type: 
  Country: None (occurrence: None)
  Receive Date: 20080904
  Receipt Date: 20080827
  Transmission Date: 20090109
  Serious: Yes (Hospitalization, Other)
  Sender: FDA-Public Use
  Company Number: CA-CELGENEUS-028-21880-08041216

PATIENT
  Sex: Female
  Weight: 62.5 kg

DRUGS (6)
  1. REVLIMID [Suspect]
     Indication: MYELODYSPLASTIC SYNDROME
     Route: 048
     Dates: start: 20080411, end: 20080422
  2. REVLIMID [Suspect]
     Route: 048
     Dates: start: 20080403, end: 20080404
  3. REVLIMID [Suspect]
     Route: 048
     Dates: start: 20080301, end: 20080318
  4. MELPHALAN [Suspect]
     Indication: MYELODYSPLASTIC SYNDROME
     Route: 048
     Dates: start: 20080301, end: 20080318
  5. MELPHALAN [Suspect]
     Dates: start: 20080403, end: 20080404
  6. MELPHALAN [Suspect]
     Route: 048
     Dates: start: 20080411, end: 20080422

REACTIONS (2)
  - FEBRILE NEUTROPENIA [None]
  - SUBDURAL HAEMATOMA [None]
